FAERS Safety Report 15702524 (Version 2)
Quarter: 2019Q1

REPORT INFORMATION
  Report Type: Report from Study
  Country: US (occurrence: US)
  Receive Date: 20181210
  Receipt Date: 20190128
  Transmission Date: 20190417
  Serious: Yes (Other)
  Sender: FDA-Public Use
  Company Number: US-ROCHE-2226681

PATIENT
  Age: 73 Year
  Sex: Female
  Weight: 58.2 kg

DRUGS (6)
  1. OBINUTUZUMAB. [Suspect]
     Active Substance: OBINUTUZUMAB
     Indication: RICHTER^S SYNDROME
     Dosage: OBINUTUZUMAB 1000 MG X 8 DOSES (FIRST DOSE SPLIT ON CYCLE 1 DAYS 1 100MG AND 2 900MG; THEN DAY 8 AND
     Route: 065
  2. LENALIDOMIDE [Suspect]
     Active Substance: LENALIDOMIDE
     Indication: RICHTER^S SYNDROME
     Dosage: MOST RECENT DOSE ON 26/NOV/2018
     Route: 048
     Dates: start: 20181002
  3. LOVENOX [Concomitant]
     Active Substance: ENOXAPARIN SODIUM
     Route: 058
     Dates: start: 20181127, end: 20181201
  4. METHYLPREDNISOLONE. [Suspect]
     Active Substance: METHYLPREDNISOLONE
     Indication: RICHTER^S SYNDROME
     Dosage: METHYLPREDNISOLONE 1000 MG/M2 (IE HDMP) ON DAYS 1-5 OF CYCLES 1-4?ON 27/NOV/2018 RECEIVED 1600 MG?MO
     Route: 065
  5. LOVENOX [Concomitant]
     Active Substance: ENOXAPARIN SODIUM
     Route: 058
     Dates: start: 20181203
  6. ELIQUIS [Concomitant]
     Active Substance: APIXABAN
     Route: 065
     Dates: start: 20181202

REACTIONS (1)
  - Pulmonary embolism [Recovered/Resolved]

NARRATIVE: CASE EVENT DATE: 20181127
